FAERS Safety Report 7018049-1 (Version None)
Quarter: 2010Q3

REPORT INFORMATION
  Report Type: 
  Country: None (occurrence: None)
  Receive Date: 20100928
  Receipt Date: 20100920
  Transmission Date: 20110219
  Serious: Yes (Hospitalization)
  Sender: FDA-Public Use
  Company Number: PHHY2010DE63389

PATIENT
  Sex: Female

DRUGS (2)
  1. FLUVASTATIN [Suspect]
     Indication: HYPERCHOLESTEROLAEMIA
     Dosage: 80 MG PER DAY
     Route: 048
     Dates: start: 20100801, end: 20100908
  2. MARCUMAR [Concomitant]
     Dosage: UNK
     Dates: end: 20100908

REACTIONS (5)
  - ANAEMIA [None]
  - CONTUSION [None]
  - MUSCLE HAEMORRHAGE [None]
  - PROTHROMBIN TIME PROLONGED [None]
  - SKIN HAEMORRHAGE [None]
